FAERS Safety Report 9234169 (Version 1)
Quarter: 2013Q2

REPORT INFORMATION
  Report Type: Spontaneous
  Country: AT (occurrence: AT)
  Receive Date: 20130416
  Receipt Date: 20130416
  Transmission Date: 20140414
  Serious: Yes (Hospitalization)
  Sender: FDA-Public Use
  Company Number: AT-ROCHE-1213152

PATIENT
  Age: 71 Year
  Sex: Female

DRUGS (5)
  1. ROACTEMRA [Suspect]
     Indication: RHEUMATOID ARTHRITIS
     Route: 065
     Dates: start: 20100413, end: 20130108
  2. MAXI-KALZ VIT D3 [Concomitant]
     Indication: OSTEOPOROSIS
     Dosage: STRENGTH: 1000MG/880 I.E.
     Route: 065
  3. LEVOTHYROXINE SODIUM [Concomitant]
     Indication: HYPOTHYROIDISM
     Route: 065
  4. AMLODIPIN [Concomitant]
     Indication: HYPERTENSION
     Route: 065
  5. PROXEN [Concomitant]
     Indication: ARTHRALGIA
     Route: 065

REACTIONS (1)
  - Cerebral infarction [Not Recovered/Not Resolved]
